FAERS Safety Report 4331431-6 (Version None)
Quarter: 2004Q1

REPORT INFORMATION
  Report Type: 
  Country: None (occurrence: None)
  Receive Date: 20040329
  Receipt Date: 20040124
  Transmission Date: 20041129
  Serious: Yes (Hospitalization, Other)
  Sender: FDA-Public Use
  Company Number: KII-2004-0008252

PATIENT
  Age: 33 Year
  Sex: Male

DRUGS (3)
  1. OXYCONTIN [Suspect]
     Indication: DRUG USE FOR UNKNOWN INDICATION
  2. ETHANOL (ETHANOL) [Suspect]
     Indication: DRUG USE FOR UNKNOWN INDICATION
  3. CANNABIS (CANNABIS) [Suspect]
     Indication: DRUG USE FOR UNKNOWN INDICATION

REACTIONS (22)
  - ANURIA [None]
  - BLOOD BICARBONATE ABNORMAL [None]
  - BLOOD CALCIUM DECREASED [None]
  - BLOOD PH ABNORMAL [None]
  - BLOOD PHOSPHORUS INCREASED [None]
  - BLOOD URINE PRESENT [None]
  - COMA [None]
  - CONFUSIONAL STATE [None]
  - COUGH [None]
  - DIALYSIS [None]
  - DRUG ABUSER [None]
  - DRUG SCREEN POSITIVE [None]
  - DYSPNOEA [None]
  - HAEMATOCRIT DECREASED [None]
  - HAEMOGLOBIN DECREASED [None]
  - HAEMOPTYSIS [None]
  - MULTIPLE DRUG OVERDOSE [None]
  - NAUSEA [None]
  - RENAL FAILURE [None]
  - RESPIRATORY RATE INCREASED [None]
  - SPUTUM ABNORMAL [None]
  - URINE ABNORMALITY [None]
